FAERS Safety Report 12836695 (Version 1)
Quarter: 2016Q4

REPORT INFORMATION
  Report Type: Report from Study
  Country: BE (occurrence: BE)
  Receive Date: 20161011
  Receipt Date: 20161011
  Transmission Date: 20170207
  Serious: Yes (Hospitalization)
  Sender: FDA-Public Use
  Company Number: BE-B.I. PHARMACEUTICALS,INC./RIDGEFIELD-2016-BI-19889BI

PATIENT
  Age: 63 Year
  Sex: Female
  Weight: 93.6 kg

DRUGS (14)
  1. CATAPRESSAN [Concomitant]
     Active Substance: CLONIDINE
     Indication: DYSPEPSIA
     Route: 048
     Dates: start: 20021118
  2. L-THYROXINE [Concomitant]
     Active Substance: LEVOTHYROXINE
     Indication: AUTOIMMUNE THYROIDITIS
     Route: 048
     Dates: start: 20061004
  3. BION-TRANSIT [Concomitant]
     Indication: PROPHYLAXIS
     Route: 048
     Dates: start: 20140205
  4. D-CURE [Concomitant]
     Indication: OSTEOPOROSIS
     Dosage: DOSE PER APP AND DAILY DOSE: DAILY DOSE 25.000 IE/ML
     Route: 048
     Dates: start: 20071024
  5. ATORVASTATINE [Concomitant]
     Active Substance: ATORVASTATIN
     Indication: HYPERCHOLESTEROLAEMIA
     Route: 048
     Dates: start: 20040714
  6. LEVEMIR [Concomitant]
     Active Substance: INSULIN DETEMIR
     Indication: TYPE 1 DIABETES MELLITUS
     Dosage: DOSE PER APP AND DAILY DOSE: 21 E
     Route: 058
     Dates: start: 20060705
  7. ACLASTA [Concomitant]
     Active Substance: ZOLEDRONIC ACID
     Indication: OSTEOPOROSIS
     Dosage: DOSE PER APP AND DAILY DOSE: DAILY DOSE 5 MG/100 ML
     Route: 042
     Dates: start: 20110316
  8. COVERSYL [Concomitant]
     Active Substance: PERINDOPRIL
     Indication: HYPERTENSION
     Route: 048
     Dates: start: 20010613
  9. DEXA-RHINOSPRAY [Concomitant]
     Indication: PROPHYLAXIS
     Dosage: ROUTE: NASAL
     Route: 050
     Dates: start: 20150709
  10. BLINDED BI 10773 [Suspect]
     Active Substance: EMPAGLIFLOZIN
     Indication: TYPE 1 DIABETES MELLITUS
     Route: 048
     Dates: start: 20151110, end: 20160904
  11. CALCIUM CARBONATE. [Concomitant]
     Active Substance: CALCIUM CARBONATE
     Indication: OSTEOPOROSIS
     Route: 048
     Dates: start: 20110720
  12. NOVORAPID [Concomitant]
     Active Substance: INSULIN ASPART
     Indication: TYPE 1 DIABETES MELLITUS
     Dosage: DOSE PER APP AND DAILY DOSE: 50 E
     Route: 058
     Dates: start: 20040324
  13. ASAFLOW [Concomitant]
     Active Substance: ASPIRIN
     Indication: CARDIOVASCULAR EVENT PROPHYLAXIS
     Route: 048
     Dates: start: 20040324
  14. BIOFENAC [Concomitant]
     Active Substance: ACECLOFENAC
     Indication: PROPHYLAXIS
     Route: 048
     Dates: start: 20130522

REACTIONS (5)
  - Vomiting [Recovered/Resolved]
  - Upper respiratory tract infection [Not Recovered/Not Resolved]
  - Diarrhoea [Recovered/Resolved]
  - Diabetic ketoacidosis [Recovered/Resolved]
  - Pleurisy [Not Recovered/Not Resolved]

NARRATIVE: CASE EVENT DATE: 20160321
